FAERS Safety Report 19628568 (Version 1)
Quarter: 2021Q3

REPORT INFORMATION
  Report Type: Other
  Country: PL (occurrence: PL)
  Receive Date: 20210728
  Receipt Date: 20210728
  Transmission Date: 20211014
  Serious: Yes (Life-Threatening, Hospitalization)
  Sender: FDA-Public Use
  Company Number: PL-NOSTRUM LABORATORIES, INC.-2114389

PATIENT
  Age: 4 Year
  Sex: Female

DRUGS (2)
  1. VALPROIC ACID. [Suspect]
     Active Substance: VALPROIC ACID
     Indication: EPILEPSY
     Route: 048
  2. LEVETIRACETAM. [Concomitant]
     Active Substance: LEVETIRACETAM
     Route: 048

REACTIONS (2)
  - Hospitalisation [Recovered/Resolved]
  - Pancreatitis acute [Recovered/Resolved]
